FAERS Safety Report 23631910 (Version 3)
Quarter: 2024Q2

REPORT INFORMATION
  Report Type: Report from Study
  Country: US (occurrence: US)
  Receive Date: 20240314
  Receipt Date: 20240418
  Transmission Date: 20240716
  Serious: Yes (Death, Other)
  Sender: FDA-Public Use
  Company Number: US-TAKEDA-2024TUS021611

PATIENT
  Sex: Male
  Weight: 59 kg

DRUGS (2)
  1. FRUQUINTINIB [Suspect]
     Active Substance: FRUQUINTINIB
     Indication: Rectosigmoid cancer
     Dosage: 3 MILLIGRAM, QD
     Route: 065
  2. FRUQUINTINIB [Suspect]
     Active Substance: FRUQUINTINIB
     Indication: Colon cancer
     Dosage: 3 MILLIGRAM, QD
     Route: 048

REACTIONS (5)
  - Death [Fatal]
  - Metastases to lung [Unknown]
  - Metastases to heart [Unknown]
  - Blood urine present [Unknown]
  - Asthenia [Not Recovered/Not Resolved]
